FAERS Safety Report 16732885 (Version 1)
Quarter: 2019Q3

REPORT INFORMATION
  Report Type: Spontaneous
  Country: US (occurrence: US)
  Receive Date: 20190823
  Receipt Date: 20190823
  Transmission Date: 20191005
  Serious: No
  Sender: FDA-Public Use
  Company Number: US-HORIZON-KRY-0588-2019

PATIENT
  Age: 79 Year
  Sex: Female

DRUGS (2)
  1. COLCHICINE. [Concomitant]
     Active Substance: COLCHICINE
  2. KRYSTEXXA [Suspect]
     Active Substance: PEGLOTICASE
     Indication: PRODUCT USED FOR UNKNOWN INDICATION
     Dates: end: 20190808

REACTIONS (1)
  - Gout [Unknown]

NARRATIVE: CASE EVENT DATE: 201908
